FAERS Safety Report 10695491 (Version 1)
Quarter: 2015Q1

REPORT INFORMATION
  Report Type: Spontaneous
  Country: US (occurrence: None)
  Receive Date: 20150105
  Receipt Date: 20150105
  Transmission Date: 20150721
  Serious: Yes (Hospitalization, Other)
  Sender: FDA-Public Use
  Company Number: 2014COV00230

PATIENT
  Age: 50 Year
  Sex: Male

DRUGS (10)
  1. DIGOXIN (DIGOXIN) UNKNOWN [Suspect]
     Active Substance: DIGOXIN
     Route: 048
  2. LOSARTAN [Concomitant]
     Active Substance: LOSARTAN
  3. SOTALOL. [Concomitant]
     Active Substance: SOTALOL
  4. LASIX [Concomitant]
     Active Substance: FUROSEMIDE
  5. DILTIAZEM [Concomitant]
     Active Substance: DILTIAZEM
  6. INSULIN [Concomitant]
     Active Substance: INSULIN NOS
  7. SIMVASTATIN. [Concomitant]
     Active Substance: SIMVASTATIN
  8. DILTIAZEM [Concomitant]
     Active Substance: DILTIAZEM
  9. WARFARIN [Concomitant]
     Active Substance: WARFARIN
  10. KCL [Concomitant]
     Active Substance: POTASSIUM CHLORIDE

REACTIONS (19)
  - Palpitations [None]
  - Chronic obstructive pulmonary disease [None]
  - Dizziness [None]
  - Cough [None]
  - Bradycardia [None]
  - Hypovolaemia [None]
  - Atrial fibrillation [None]
  - Cardiomegaly [None]
  - Left ventricular hypertrophy [None]
  - International normalised ratio increased [None]
  - Hyperkalaemia [None]
  - Urinary hesitation [None]
  - Aspiration [None]
  - Syncope [None]
  - Hyperglycaemia [None]
  - Fall [None]
  - Rib fracture [None]
  - Pulmonary vascular disorder [None]
  - Dehydration [None]

NARRATIVE: CASE EVENT DATE: 20140903
